FAERS Safety Report 21047651 (Version 1)
Quarter: 2022Q3

REPORT INFORMATION
  Report Type: Spontaneous
  Country: US (occurrence: None)
  Receive Date: 20220705
  Receipt Date: 20220705
  Transmission Date: 20221027
  Serious: Yes (Life-Threatening, Other)
  Sender: FDA-Public Use
  Company Number: None

PATIENT
  Age: 44 Year
  Sex: Female
  Weight: 49.5 kg

DRUGS (13)
  1. MIRTAZAPINE [Suspect]
     Active Substance: MIRTAZAPINE
     Indication: Depression
     Dosage: FREQUENCY : AT BEDTIME;?
     Route: 048
     Dates: start: 20220601, end: 20220605
  2. XARELTO [Concomitant]
     Active Substance: RIVAROXABAN
  3. AIMOVIG [Concomitant]
     Active Substance: ERENUMAB-AOOE
  4. CLONAZEPAM [Concomitant]
     Active Substance: CLONAZEPAM
  5. SYNTHROID [Concomitant]
     Active Substance: LEVOTHYROXINE SODIUM
  6. PROZAC [Concomitant]
     Active Substance: FLUOXETINE HYDROCHLORIDE
  7. Depo-subQ [Concomitant]
  8. ATORVASTATIN [Concomitant]
     Active Substance: ATORVASTATIN
  9. PERCOCET [Concomitant]
     Active Substance: ACETAMINOPHEN\OXYCODONE HYDROCHLORIDE
  10. Ventolin inhaler [Concomitant]
  11. FIORICET [Concomitant]
     Active Substance: ACETAMINOPHEN\BUTALBITAL\CAFFEINE
  12. VITAMINS [Concomitant]
     Active Substance: VITAMINS
  13. CALCIUM WITH D3 [Concomitant]

REACTIONS (2)
  - Suicidal ideation [None]
  - Photosensitivity reaction [None]

NARRATIVE: CASE EVENT DATE: 20220604
